FAERS Safety Report 9750299 (Version 1)
Quarter: 2013Q4

REPORT INFORMATION
  Report Type: Spontaneous
  Country: US (occurrence: US)
  Receive Date: 20131212
  Receipt Date: 20131212
  Transmission Date: 20140711
  Serious: No
  Sender: FDA-Public Use
  Company Number: US-BIOGENIDEC-2013BI099765

PATIENT
  Age: 53 Year
  Sex: Male

DRUGS (12)
  1. TECFIDERA [Suspect]
     Indication: PRODUCT USED FOR UNKNOWN INDICATION
     Route: 048
     Dates: start: 20130806, end: 20130813
  2. TECFIDERA [Suspect]
     Indication: PRODUCT USED FOR UNKNOWN INDICATION
     Route: 048
     Dates: start: 20130814
  3. XANAX [Concomitant]
  4. AMBIEN [Concomitant]
  5. OXCARBAZEPINE [Concomitant]
  6. AMLODIPINE [Concomitant]
  7. TRAMADOL [Concomitant]
  8. LISINOPRIL [Concomitant]
  9. GABAPENTIN [Concomitant]
  10. FLONASE [Concomitant]
  11. ASPIRIN [Concomitant]
  12. PROAIR HFA [Concomitant]

REACTIONS (1)
  - Gastrointestinal disorder [Unknown]
